FAERS Safety Report 6197237-0 (Version None)
Quarter: 2009Q2

REPORT INFORMATION
  Report Type: 
  Country: None (occurrence: None)
  Receive Date: 20090521
  Receipt Date: 20071218
  Transmission Date: 20091009
  Serious: Yes (Other)
  Sender: FDA-Public Use
  Company Number: US-ASTRAZENECA-2006UW05345

PATIENT
  Age: 49 Year
  Sex: Female

DRUGS (10)
  1. SEROQUEL [Suspect]
     Indication: BIPOLAR DISORDER
     Route: 048
     Dates: start: 20000101, end: 20060101
  2. SEROQUEL [Suspect]
     Indication: SCHIZOAFFECTIVE DISORDER
     Route: 048
     Dates: start: 20000101, end: 20060101
  3. SEROQUEL [Suspect]
  4. SEROQUEL [Suspect]
  5. ZYPREXA [Suspect]
     Dates: start: 19960101
  6. ZYPREXA [Suspect]
     Route: 065
  7. RISPERDAL [Suspect]
     Dates: start: 19950101
  8. RISPERDAL [Suspect]
     Dosage: 3 MG, 4 MG DISPENSED
  9. LITHIUM CARBONATE [Concomitant]
  10. BENZTROPINE [Concomitant]

REACTIONS (1)
  - MYOCARDIAL INFARCTION [None]
